FAERS Safety Report 11457591 (Version 1)
Quarter: 2015Q3

REPORT INFORMATION
  Report Type: Spontaneous
  Country: CA (occurrence: CA)
  Receive Date: 20150904
  Receipt Date: 20150904
  Transmission Date: 20151125
  Serious: Yes (Life-Threatening, Hospitalization, Congenital Anomaly, Other)
  Sender: FDA-Public Use
  Company Number: CA-TEVA-591199ACC

PATIENT
  Age: 1 Day
  Sex: Male
  Weight: 2 kg

DRUGS (3)
  1. LORAZEPAM. [Concomitant]
     Active Substance: LORAZEPAM
  2. VENLAFAXINE XR [Suspect]
     Active Substance: VENLAFAXINE HYDROCHLORIDE
     Indication: DEPRESSION
     Dosage: 75 MILLIGRAM DAILY;
     Route: 064
  3. PRENATAL MULTIPLE VITAMIN [Concomitant]

REACTIONS (5)
  - Ureaplasma infection [Recovering/Resolving]
  - Chills [Recovering/Resolving]
  - Drug withdrawal syndrome [Recovering/Resolving]
  - Tachypnoea [Recovering/Resolving]
  - Heart disease congenital [Recovering/Resolving]
